FAERS Safety Report 17516605 (Version 1)
Quarter: 2020Q1

REPORT INFORMATION
  Report Type: Spontaneous
  Country: FR (occurrence: FR)
  Receive Date: 20200309
  Receipt Date: 20200309
  Transmission Date: 20200409
  Serious: Yes (Hospitalization)
  Sender: FDA-Public Use
  Company Number: FR-MYLANLABS-2020M1023690

PATIENT
  Age: 69 Year
  Sex: Male
  Weight: 70 kg

DRUGS (7)
  1. FLUOROURACILE [Suspect]
     Active Substance: FLUOROURACIL
     Indication: ADENOCARCINOMA GASTRIC
     Dosage: 156 MILLIGRAM
     Route: 042
     Dates: start: 20191218
  2. PANTOPRAZOLE [Concomitant]
     Active Substance: PANTOPRAZOLE
     Dosage: UNK
  3. TRAVATAN [Concomitant]
     Active Substance: TRAVOPROST
     Dosage: UNK
     Route: 047
  4. DOCETAXEL. [Suspect]
     Active Substance: DOCETAXEL
     Indication: ADENOCARCINOMA GASTRIC
     Dosage: 92 MILLIGRAM
     Route: 042
     Dates: start: 20191218
  5. INSULIN [Concomitant]
     Active Substance: INSULIN NOS
  6. OXALIPLATIN. [Suspect]
     Active Substance: OXALIPLATIN
     Indication: ADENOCARCINOMA GASTRIC
     Dosage: 156 MILLIGRAM
     Route: 042
     Dates: start: 20191218
  7. STAGID [Concomitant]
     Active Substance: METFORMIN PAMOATE
     Dosage: UNK
     Route: 048

REACTIONS (3)
  - Diarrhoea [Recovered/Resolved]
  - Hypovolaemic shock [Recovered/Resolved]
  - Neutropenia [Recovered/Resolved]

NARRATIVE: CASE EVENT DATE: 201912
